FAERS Safety Report 11788059 (Version 1)
Quarter: 2015Q4

REPORT INFORMATION
  Report Type: Spontaneous
  Country: FR (occurrence: FR)
  Receive Date: 20151130
  Receipt Date: 20151130
  Transmission Date: 20160305
  Serious: Yes (Other)
  Sender: FDA-Public Use
  Company Number: FR-HOSPIRA-3089879

PATIENT
  Age: 16 Year
  Sex: Male

DRUGS (7)
  1. VINCRISTINE SULFATE. [Suspect]
     Active Substance: VINCRISTINE SULFATE
     Indication: EWING^S SARCOMA
     Route: 041
     Dates: start: 20130611, end: 20140612
  2. ENDOXAN                            /00021101/ [Suspect]
     Active Substance: CYCLOPHOSPHAMIDE
     Indication: EWING^S SARCOMA
     Route: 041
     Dates: start: 20131206, end: 20140612
  3. ADRIBLASTINE [Suspect]
     Active Substance: DOXORUBICIN
     Indication: EWING^S SARCOMA
     Route: 041
     Dates: start: 20130611, end: 20131004
  4. ETOPOSIDE MYLAN [Suspect]
     Active Substance: ETOPOSIDE
     Indication: EWING^S SARCOMA
     Route: 041
     Dates: start: 20130611, end: 20131004
  5. MESNA. [Suspect]
     Active Substance: MESNA
     Indication: EWING^S SARCOMA
     Route: 041
     Dates: start: 20130611, end: 20140612
  6. IFOSFAMIDE. [Suspect]
     Active Substance: IFOSFAMIDE
     Indication: EWING^S SARCOMA
     Route: 041
     Dates: start: 20130611, end: 20131116
  7. COSMEGEN [Suspect]
     Active Substance: DACTINOMYCIN
     Indication: EWING^S SARCOMA
     Route: 041
     Dates: start: 20131114, end: 20140612

REACTIONS (1)
  - Renal tubular disorder [Recovered/Resolved with Sequelae]

NARRATIVE: CASE EVENT DATE: 20150718
